FAERS Safety Report 10575314 (Version 3)
Quarter: 2015Q1

REPORT INFORMATION
  Report Type: Spontaneous
  Country: CA (occurrence: None)
  Receive Date: 20141107
  Receipt Date: 20150210
  Transmission Date: 20150720
  Serious: Yes (Hospitalization)
  Sender: FDA-Public Use
  Company Number: 2014CA009465

PATIENT

DRUGS (1)
  1. ELIGARD [Suspect]
     Active Substance: LEUPROLIDE ACETATE
     Indication: PROSTATE CANCER RECURRENT
     Dosage: Q3MONTHS, SUBCUTANEOUS
     Route: 058

REACTIONS (2)
  - Drug dose omission [None]
  - Hospitalisation [None]
